FAERS Safety Report 7308187-8 (Version None)
Quarter: 2011Q1

REPORT INFORMATION
  Report Type: 
  Country: None (occurrence: None)
  Receive Date: 20110223
  Receipt Date: 20110216
  Transmission Date: 20110831
  Serious: Yes (Death)
  Sender: FDA-Public Use
  Company Number: JP-ROCHE-761122

PATIENT
  Age: 54 Year
  Sex: Male

DRUGS (1)
  1. TAMIFLU [Suspect]
     Indication: INFLUENZA
     Dosage: FORM: UNCERTAINTY. DOSAGE IS UNCERTAIN
     Route: 048
     Dates: start: 20110210, end: 20110212

REACTIONS (1)
  - CARDIO-RESPIRATORY ARREST [None]
